FAERS Safety Report 7766039-3 (Version None)
Quarter: 2011Q3

REPORT INFORMATION
  Report Type: 
  Country: None (occurrence: None)
  Receive Date: 20110921
  Receipt Date: 20110919
  Transmission Date: 20111222
  Serious: Yes (Hospitalization)
  Sender: FDA-Public Use
  Company Number: US-GILEAD-2011-0044167

PATIENT
  Age: 39 Year
  Sex: Male

DRUGS (3)
  1. REVATIO [Concomitant]
  2. EPOPROSTENOL SODIUM [Concomitant]
  3. LETAIRIS [Suspect]
     Indication: PRODUCT USED FOR UNKNOWN INDICATION
     Route: 048
     Dates: start: 20110424

REACTIONS (1)
  - DEVICE FAILURE [None]
